FAERS Safety Report 19986403 (Version 1)
Quarter: 2021Q4

REPORT INFORMATION
  Report Type: Report from Study
  Country: NL (occurrence: NL)
  Receive Date: 20211022
  Receipt Date: 20211022
  Transmission Date: 20220303
  Serious: Yes (Other)
  Sender: FDA-Public Use
  Company Number: NL-SA-SAC20211016000337

PATIENT
  Age: 49 Year
  Sex: Female

DRUGS (8)
  1. TERIFLUNOMIDE [Suspect]
     Active Substance: TERIFLUNOMIDE
     Indication: Relapsing-remitting multiple sclerosis
     Dosage: 14 MG, QD
     Route: 048
     Dates: start: 20140901, end: 2021
  2. CARBOPLATIN [Concomitant]
     Active Substance: CARBOPLATIN
     Dosage: 450MG=45ML
  3. PACLITAXEL [Concomitant]
     Active Substance: PACLITAXEL
     Dosage: 450 MG
  4. PERTUZUMAB [Concomitant]
     Active Substance: PERTUZUMAB
     Dosage: UNK
  5. TRASTUZUMAB [Concomitant]
     Active Substance: TRASTUZUMAB
     Dosage: UNK
  6. QVAR [Concomitant]
     Active Substance: BECLOMETHASONE DIPROPIONATE
     Dosage: 100 UG
  7. MIRENA [Concomitant]
     Active Substance: LEVONORGESTREL
     Dosage: UNK
  8. FORMOTEROL [Concomitant]
     Active Substance: FORMOTEROL
     Dosage: 12 UG

REACTIONS (1)
  - Breast cancer female [Not Recovered/Not Resolved]

NARRATIVE: CASE EVENT DATE: 20210812
